FAERS Safety Report 22607133 (Version 1)
Quarter: 2023Q2

REPORT INFORMATION
  Report Type: Spontaneous
  Country: US (occurrence: None)
  Receive Date: 20230615
  Receipt Date: 20230615
  Transmission Date: 20230721
  Serious: Yes (Hospitalization)
  Sender: FDA-Public Use
  Company Number: US-ROCHE-3366640

PATIENT
  Age: 47 Year
  Sex: Female
  Weight: 70.6 kg

DRUGS (1)
  1. CELLCEPT [Suspect]
     Active Substance: MYCOPHENOLATE MOFETIL
     Indication: Pulmonary fibrosis
     Route: 048

REACTIONS (6)
  - Infection [Not Recovered/Not Resolved]
  - Respiratory distress [Unknown]
  - Off label use [Unknown]
  - Dysphagia [Not Recovered/Not Resolved]
  - Clostridium difficile infection [Unknown]
  - Vomiting [Unknown]

NARRATIVE: CASE EVENT DATE: 20230522
